FAERS Safety Report 10005020 (Version 1)
Quarter: 2014Q1

REPORT INFORMATION
  Report Type: Other
  Country: BD (occurrence: BD)
  Receive Date: 20140312
  Receipt Date: 20140312
  Transmission Date: 20141002
  Serious: Yes (Other)
  Sender: FDA-Public Use
  Company Number: BD-BRISTOL-MYERS SQUIBB COMPANY-20469383

PATIENT
  Sex: Female

DRUGS (3)
  1. METFORMIN HCL [Suspect]
     Indication: POLYCYSTIC OVARIES
     Dosage: 1500MG
  2. FOLLITROPIN ALFA [Suspect]
     Indication: OVULATION INDUCTION
  3. HUMAN CHORIONIC GONADOTROPHIN [Concomitant]
     Indication: OVULATION INDUCTION

REACTIONS (3)
  - Abortion [Recovered/Resolved]
  - Pregnancy [Recovered/Resolved]
  - Off label use [Unknown]
